FAERS Safety Report 7769590-5 (Version None)
Quarter: 2011Q3

REPORT INFORMATION
  Report Type: 
  Country: None (occurrence: None)
  Receive Date: 20110922
  Receipt Date: 20100831
  Transmission Date: 20111222
  Serious: No
  Sender: FDA-Public Use
  Company Number: US-ASTRAZENECA-2010SE41158

PATIENT
  Age: 42 Year
  Sex: Male

DRUGS (3)
  1. SEROQUEL XR [Suspect]
     Indication: MAJOR DEPRESSION
     Route: 048
  2. SEROQUEL XR [Suspect]
     Route: 048
  3. PROZAC [Concomitant]

REACTIONS (4)
  - PANIC REACTION [None]
  - ANXIETY [None]
  - MUSCULAR WEAKNESS [None]
  - FEELING JITTERY [None]
